FAERS Safety Report 10374676 (Version 1)
Quarter: 2014Q3

REPORT INFORMATION
  Report Type: Spontaneous
  Country: US (occurrence: US)
  Receive Date: 20140811
  Receipt Date: 20140811
  Transmission Date: 20150326
  Serious: No
  Sender: FDA-Public Use
  Company Number: US-TEVA-483506USA

PATIENT
  Age: 88 Year
  Sex: Female

DRUGS (2)
  1. PROGESTERONE. [Suspect]
     Active Substance: PROGESTERONE
  2. PROMETRIUM [Suspect]
     Active Substance: PROGESTERONE
     Dates: start: 1984

REACTIONS (1)
  - Hot flush [Unknown]
